FAERS Safety Report 4365847-9 (Version None)
Quarter: 2004Q2

REPORT INFORMATION
  Report Type: 
  Country: None (occurrence: None)
  Receive Date: 20040520
  Receipt Date: 20040508
  Transmission Date: 20050107
  Serious: Yes (Death)
  Sender: FDA-Public Use
  Company Number: BE-JNJFOC-20040300285

PATIENT
  Age: 73 Year
  Sex: Male

DRUGS (4)
  1. CISAPRIDE (CISAPRIDE) TABLETS [Suspect]
     Indication: IMPAIRED GASTRIC EMPTYING
     Dosage: 10 MG, 3 IN 1 DAY, UNKNOWN
     Dates: start: 20030226, end: 20030317
  2. DUOVENT (INHALATION) DUOVENT [Concomitant]
  3. AMLOR (UNKNOWN) AMLODIPINE BESILATE [Concomitant]
  4. FLIXOTIDE (FLUTICASONE) [Concomitant]

REACTIONS (2)
  - LARGE INTESTINE PERFORATION [None]
  - POST PROCEDURAL COMPLICATION [None]
